FAERS Safety Report 23421424 (Version 2)
Quarter: 2024Q1

REPORT INFORMATION
  Report Type: Spontaneous
  Country: GB (occurrence: GB)
  Receive Date: 20240119
  Receipt Date: 20240125
  Transmission Date: 20240410
  Serious: Yes (Disabling, Other)
  Sender: FDA-Public Use
  Company Number: None

PATIENT
  Age: 35 Year
  Sex: Male

DRUGS (3)
  1. VENLAFAXINE [Suspect]
     Active Substance: VENLAFAXINE HYDROCHLORIDE
     Indication: Product used for unknown indication
     Dosage: 37.5, 75, 112.5MG OD
     Route: 065
  2. FLUOXETINE [Suspect]
     Active Substance: FLUOXETINE HYDROCHLORIDE
     Indication: Product used for unknown indication
     Dosage: UNKNOWN
     Route: 065
  3. SERTRALINE [Suspect]
     Active Substance: SERTRALINE HYDROCHLORIDE
     Indication: Product used for unknown indication
     Dosage: UNKNOWN
     Route: 065

REACTIONS (15)
  - Emotional poverty [Not Recovered/Not Resolved]
  - Fatigue [Unknown]
  - Genital anaesthesia [Unknown]
  - Loss of libido [Unknown]
  - Organic erectile dysfunction [Unknown]
  - Erectile dysfunction [Unknown]
  - Orgasmic sensation decreased [Unknown]
  - Semen volume decreased [Unknown]
  - Serotonin syndrome [Unknown]
  - Withdrawal syndrome [Unknown]
  - Cognitive disorder [Unknown]
  - Bradyphrenia [Unknown]
  - Memory impairment [Unknown]
  - Depression [Unknown]
  - Anxiety [Unknown]

NARRATIVE: CASE EVENT DATE: 20220301
